FAERS Safety Report 4613958-2 (Version None)
Quarter: 2005Q1

REPORT INFORMATION
  Report Type: 
  Country: None (occurrence: None)
  Receive Date: 20050321
  Receipt Date: 20040527
  Transmission Date: 20050727
  Serious: Yes (Other)
  Sender: FDA-Public Use
  Company Number: BE-JNJFOC-20040602358

PATIENT
  Age: 6 Month
  Sex: Female
  Weight: 7.82 kg

DRUGS (8)
  1. PROPULSID [Suspect]
     Route: 049
  2. PROPULSID [Suspect]
     Route: 049
  3. PROPULSID [Suspect]
     Route: 049
  4. GAVISCON [Concomitant]
  5. GAVISCON [Concomitant]
  6. ZANTAC [Concomitant]
  7. ATROVENT [Concomitant]
  8. BISOLVON [Concomitant]

REACTIONS (1)
  - PNEUMONIA [None]
